FAERS Safety Report 4300504-6 (Version None)
Quarter: 2004Q1

REPORT INFORMATION
  Report Type: 
  Country: None (occurrence: None)
  Receive Date: 20040217
  Receipt Date: 20040206
  Transmission Date: 20041129
  Serious: Yes (Other)
  Sender: FDA-Public Use
  Company Number: 200311162BVD

PATIENT
  Age: 61 Year
  Sex: Male
  Weight: 67 kg

DRUGS (12)
  1. CIPROFLOXACIN [Suspect]
     Indication: BRONCHITIS
     Dosage: 1000 MG, TOTAL DAILY, ORAL
     Route: 048
     Dates: start: 20030825, end: 20030831
  2. CLOZAPINE [Suspect]
  3. ACC [Concomitant]
  4. REFOBACIN [Concomitant]
  5. LEPONEX [Concomitant]
  6. ATOSIL [Concomitant]
  7. LORAZEPAM [Concomitant]
  8. SOLIAN [Concomitant]
  9. EISEN [Concomitant]
  10. ESPUMISAN [Concomitant]
  11. SIMETHICON [Concomitant]
  12. LACTULOSE [Concomitant]

REACTIONS (5)
  - ANAEMIA [None]
  - CONDITION AGGRAVATED [None]
  - DRUG INTERACTION [None]
  - DRUG LEVEL INCREASED [None]
  - PSYCHOTIC DISORDER [None]
